FAERS Safety Report 25377818 (Version 1)
Quarter: 2025Q2

REPORT INFORMATION
  Report Type: Spontaneous
  Country: US (occurrence: US)
  Receive Date: 20250530
  Receipt Date: 20250530
  Transmission Date: 20250716
  Serious: No
  Sender: CIPLA
  Company Number: US-CIPLA LTD.-2024US03876

PATIENT

DRUGS (4)
  1. ALBUTEROL [Suspect]
     Active Substance: ALBUTEROL
     Indication: Wheezing
     Dates: start: 20240406
  2. METOPROLOL [Concomitant]
     Active Substance: METOPROLOL
     Indication: Hypertension
     Dosage: 50 MILLIGRAM, BID (TWICE A DAY) (PATIENT RAN OUT OF MEDICATION COUPLE OF WEEKS BACK)
     Route: 065
     Dates: start: 202311, end: 202404
  3. AMLODIPINE [Concomitant]
     Active Substance: AMLODIPINE BESYLATE
     Indication: Hypertension
     Dosage: UNK, QD (ONCE A DAY) (PATIENT RAN OUT OF MEDICATION COUPLE OF WEEKS BACK)
     Route: 065
     Dates: start: 202311, end: 202404
  4. FLECAINIDE [Concomitant]
     Active Substance: FLECAINIDE
     Indication: Hypertension
     Dosage: BID (SOMEWHERE BETWEEN 50 TO 75 MG (HE WAS NOT SURE AND BREAKS THEM IN HALF)/TWICE A DAY? IN THE MOR
     Route: 065
     Dates: start: 202311, end: 202404

REACTIONS (2)
  - Drug ineffective [Unknown]
  - Prescription drug used without a prescription [Unknown]

NARRATIVE: CASE EVENT DATE: 20240401
